FAERS Safety Report 6284346-0 (Version None)
Quarter: 2009Q3

REPORT INFORMATION
  Report Type: 
  Country: None (occurrence: None)
  Receive Date: 20090722
  Receipt Date: 20090710
  Transmission Date: 20100115
  Serious: Yes (Hospitalization)
  Sender: FDA-Public Use
  Company Number: 2009-02167

PATIENT
  Age: 62 Year
  Sex: Male

DRUGS (6)
  1. VELCADE [Suspect]
     Indication: MULTIPLE MYELOMA
     Dosage: 2.4 MG, INTRAVENOUS
     Route: 042
     Dates: start: 20090120, end: 20090403
  2. DEXAMETHASONE TAB [Suspect]
     Indication: MULTIPLE MYELOMA
     Dosage: 10 MG, ORAL
     Route: 048
     Dates: start: 20090120, end: 20090403
  3. OXYCONTIN [Concomitant]
  4. OMEPRAZOLE [Concomitant]
  5. ACYCLOVIR [Concomitant]
  6. CALCIUM CARBONATE [Concomitant]

REACTIONS (4)
  - DEHYDRATION [None]
  - GASTROINTESTINAL CANDIDIASIS [None]
  - HYPOTENSION [None]
  - PYREXIA [None]
